FAERS Safety Report 8068317-X (Version None)
Quarter: 2012Q1

REPORT INFORMATION
  Report Type: 
  Country: None (occurrence: None)
  Receive Date: 20120124
  Receipt Date: 20111012
  Transmission Date: 20120608
  Serious: No
  Sender: FDA-Public Use
  Company Number: US-AMGEN-USASP2011052770

PATIENT
  Sex: Male

DRUGS (8)
  1. TEMAZEPAM [Concomitant]
  2. ISOSORBIDE MONONITRATE [Concomitant]
  3. FUROSEMIDE [Concomitant]
  4. XGEVA [Suspect]
     Indication: METASTASES TO BONE
     Dosage: 120 MG, Q4WK
     Dates: start: 20111006
  5. DILTIAZEM [Concomitant]
  6. MS CONTIN [Concomitant]
  7. OXYCODONE HCL [Concomitant]
  8. PLAVIX [Concomitant]

REACTIONS (1)
  - BLISTER [None]
